FAERS Safety Report 21967602 (Version 1)
Quarter: 2023Q1

REPORT INFORMATION
  Report Type: Spontaneous
  Country: US (occurrence: None)
  Receive Date: 20230206
  Receipt Date: 20230206
  Transmission Date: 20230418
  Serious: Yes (Hospitalization)
  Sender: FDA-Public Use
  Company Number: None

PATIENT
  Age: 56 Year
  Sex: Female

DRUGS (1)
  1. THEOPHYLLINE [Suspect]
     Active Substance: THEOPHYLLINE
     Indication: Pseudohypoparathyroidism
     Dosage: 600 MG DAILY ORAL?
     Route: 048
     Dates: start: 20220203, end: 20230122

REACTIONS (9)
  - Hypocalcaemia [None]
  - Sinusitis [None]
  - Arthralgia [None]
  - Pain in extremity [None]
  - Mobility decreased [None]
  - Seizure [None]
  - Weight decreased [None]
  - Hypophagia [None]
  - Therapy cessation [None]

NARRATIVE: CASE EVENT DATE: 20230122
